FAERS Safety Report 8173834-8 (Version None)
Quarter: 2012Q1

REPORT INFORMATION
  Report Type: 
  Country: None (occurrence: None)
  Receive Date: 20120229
  Receipt Date: 20120221
  Transmission Date: 20120608
  Serious: Yes (Hospitalization)
  Sender: FDA-Public Use
  Company Number: DE-ELI_LILLY_AND_COMPANY-DE201202005803

PATIENT
  Sex: Male

DRUGS (4)
  1. CORTISONE ACETATE [Concomitant]
     Dosage: 5 MG, QD
  2. CALCIUM [Concomitant]
  3. FORTEO [Suspect]
     Indication: OSTEOPOROSIS
     Dosage: UNK, QD
     Route: 058
     Dates: start: 20110810
  4. CORTISONE ACETATE [Concomitant]
     Dosage: 7.5 MG, QD

REACTIONS (3)
  - HOSPITALISATION [None]
  - SPINAL FRACTURE [None]
  - SPINAL DISORDER [None]
